FAERS Safety Report 24904913 (Version 2)
Quarter: 2025Q3

REPORT INFORMATION
  Report Type: Report from Study
  Country: US (occurrence: US)
  Receive Date: 20250130
  Receipt Date: 20250802
  Transmission Date: 20251020
  Serious: Yes (Other)
  Sender: ALEXION PHARMACEUTICALS
  Company Number: US-AstraZeneca-CH-00791115A

PATIENT
  Sex: Female

DRUGS (1)
  1. BENRALIZUMAB [Suspect]
     Active Substance: BENRALIZUMAB
     Route: 065

REACTIONS (9)
  - Asthma [Unknown]
  - Dyspnoea [Unknown]
  - Malaise [Unknown]
  - Gait disturbance [Unknown]
  - Spinal stenosis [Unknown]
  - Arthropathy [Unknown]
  - Spondylitis [Unknown]
  - Dyspnoea exertional [Unknown]
  - Chronic obstructive pulmonary disease [Unknown]
